FAERS Safety Report 8954498 (Version 1)
Quarter: 2012Q4

REPORT INFORMATION
  Report Type: 
  Country: CA (occurrence: CA)
  Receive Date: 20121210
  Receipt Date: 20121210
  Transmission Date: 20130627
  Serious: Yes (Other)
  Sender: FDA-Public Use
  Company Number: PHHY2012CA111076

PATIENT
  Age: 11 Year
  Sex: Male

DRUGS (2)
  1. METHYLPHENIDATE [Suspect]
     Indication: ATTENTION DEFICIT/HYPERACTIVITY DISORDER
     Dosage: UNK UKN, UNK
  2. METHYLPHENIDATE [Suspect]
     Dosage: 54 mg, UNK

REACTIONS (12)
  - Concomitant disease progression [Recovering/Resolving]
  - Dyskinesia [Unknown]
  - Speech disorder [Unknown]
  - Pain [Unknown]
  - Condition aggravated [Unknown]
  - Attention deficit/hyperactivity disorder [Unknown]
  - Sleep disorder [Unknown]
  - Somnolence [Unknown]
  - Chest discomfort [Unknown]
  - Irritability [Unknown]
  - Fatigue [Unknown]
  - Dizziness [Unknown]
